FAERS Safety Report 18966043 (Version 1)
Quarter: 2021Q1

REPORT INFORMATION
  Report Type: Spontaneous
  Country: US (occurrence: US)
  Receive Date: 20210303
  Receipt Date: 20210303
  Transmission Date: 20210420
  Serious: No
  Sender: FDA-Public Use
  Company Number: US-TEVA-2021-US-1886411

PATIENT
  Sex: Female

DRUGS (12)
  1. POTASSIUM COMPAZINE [Concomitant]
  2. ONDANSETRON [Concomitant]
     Active Substance: ONDANSETRON
  3. BACLOFEN. [Concomitant]
     Active Substance: BACLOFEN
  4. SYNRIBO [Suspect]
     Active Substance: OMACETAXINE MEPESUCCINATE
     Indication: CHRONIC MYELOID LEUKAEMIA
     Dosage: 2.5MG/0.71ML ONE TIME DAILY FOR 7 DAYS OF A 28 DAY CYCLE.
     Dates: start: 20201018
  5. PROMETHAZINE [Concomitant]
     Active Substance: PROMETHAZINE HYDROCHLORIDE
  6. DECADRON [Concomitant]
     Active Substance: DEXAMETHASONE
  7. LORATADINE. [Concomitant]
     Active Substance: LORATADINE
  8. LISINOPRIL. [Concomitant]
     Active Substance: LISINOPRIL
  9. TYLENOL [Concomitant]
     Active Substance: ACETAMINOPHEN
  10. DULOXETINE. [Concomitant]
     Active Substance: DULOXETINE
  11. VENTOLINE [Concomitant]
     Active Substance: ALBUTEROL
  12. LORAZEPAM. [Concomitant]
     Active Substance: LORAZEPAM

REACTIONS (2)
  - Blood count abnormal [Unknown]
  - Drug ineffective [Unknown]
